FAERS Safety Report 19989470 (Version 1)
Quarter: 2021Q4

REPORT INFORMATION
  Report Type: Spontaneous
  Country: GB (occurrence: GB)
  Receive Date: 20211025
  Receipt Date: 20211025
  Transmission Date: 20220303
  Serious: Yes (Other)
  Sender: FDA-Public Use
  Company Number: GB-PANPHARMAP-2021009792

PATIENT
  Age: 66 Year
  Sex: Male

DRUGS (1)
  1. BUPIVACAINE HYDROCHLORIDE [Suspect]
     Active Substance: BUPIVACAINE HYDROCHLORIDE
     Indication: Spinal anaesthesia
     Dosage: 3.2 MILLILITER, ONCE A DAY
     Route: 037
     Dates: start: 20210929, end: 20210929

REACTIONS (3)
  - Drug ineffective [Unknown]
  - Anaesthetic complication [Unknown]
  - Pain [Unknown]

NARRATIVE: CASE EVENT DATE: 20210929
